FAERS Safety Report 15863336 (Version 2)
Quarter: 2019Q1

REPORT INFORMATION
  Report Type: Spontaneous
  Country: CR (occurrence: CR)
  Receive Date: 20190124
  Receipt Date: 20190125
  Transmission Date: 20190417
  Serious: Yes (Hospitalization, Other)
  Sender: FDA-Public Use
  Company Number: CR-PFIZER INC-2019025555

PATIENT
  Age: 18 Year
  Sex: Male

DRUGS (1)
  1. RELPAX [Suspect]
     Active Substance: ELETRIPTAN HYDROBROMIDE
     Indication: MIGRAINE
     Dosage: 40 MG, UNK

REACTIONS (2)
  - Blood creatine phosphokinase increased [Recovered/Resolved]
  - Epilepsy [Recovered/Resolved]
